FAERS Safety Report 23072800 (Version 8)
Quarter: 2024Q2

REPORT INFORMATION
  Report Type: Spontaneous
  Country: CA (occurrence: CA)
  Receive Date: 20231017
  Receipt Date: 20240504
  Transmission Date: 20240716
  Serious: Yes (Other)
  Sender: FDA-Public Use
  Company Number: CA-CELLTRION INC.-2023CA019988

PATIENT

DRUGS (5)
  1. INFLECTRA [Suspect]
     Active Substance: INFLIXIMAB-DYYB
     Indication: Colitis ulcerative
     Dosage: 10 MG/KG, EVERY 6 WEEKS
     Route: 042
     Dates: start: 20220513
  2. INFLECTRA [Suspect]
     Active Substance: INFLIXIMAB-DYYB
     Dosage: 10 MG/KG, EVERY 6 WEEKS
     Route: 042
     Dates: start: 20231010
  3. INFLECTRA [Suspect]
     Active Substance: INFLIXIMAB-DYYB
     Dosage: 10 MG/KG, EVERY 6 WEEKS
     Route: 042
  4. INFLECTRA [Suspect]
     Active Substance: INFLIXIMAB-DYYB
     Dosage: 10 MG/KG, EVERY 6 WEEKS
     Dates: start: 20240314
  5. MESALAMINE [Concomitant]
     Active Substance: MESALAMINE
     Dosage: 1 DF, FREQUENCY INFORMATION NOT AVAILABLE
     Route: 065
     Dates: start: 2010

REACTIONS (11)
  - Fall [Recovering/Resolving]
  - Skin cancer [Unknown]
  - Blood pressure increased [Unknown]
  - Clavicle fracture [Recovering/Resolving]
  - Contusion [Unknown]
  - Rhinorrhoea [Not Recovered/Not Resolved]
  - Sinusitis [Not Recovered/Not Resolved]
  - Ear infection [Not Recovered/Not Resolved]
  - Onychomycosis [Not Recovered/Not Resolved]
  - Oral herpes [Unknown]
  - Eczema [Unknown]

NARRATIVE: CASE EVENT DATE: 20230101
